FAERS Safety Report 17194600 (Version 1)
Quarter: 2019Q4

REPORT INFORMATION
  Report Type: Report from Study
  Country: IT (occurrence: IT)
  Receive Date: 20191224
  Receipt Date: 20191224
  Transmission Date: 20200122
  Serious: Yes (Hospitalization)
  Sender: FDA-Public Use
  Company Number: IT-TEVA-2019-IT-1155443

PATIENT
  Age: 90 Year
  Sex: Male

DRUGS (5)
  1. RYTMONORM [Suspect]
     Active Substance: PROPAFENONE
     Route: 048
     Dates: start: 20190909, end: 20190909
  2. OMEPRAZOLE. [Concomitant]
     Active Substance: OMEPRAZOLE
  3. FLECAINIDE [Concomitant]
     Active Substance: FLECAINIDE
  4. CONGESCOR [Concomitant]
     Active Substance: BISOPROLOL
  5. RIOPAN [Concomitant]

REACTIONS (1)
  - Arrhythmia [Not Recovered/Not Resolved]

NARRATIVE: CASE EVENT DATE: 20190910
